FAERS Safety Report 21591616 (Version 1)
Quarter: 2022Q4

REPORT INFORMATION
  Report Type: Spontaneous
  Country: FR (occurrence: FR)
  Receive Date: 20221114
  Receipt Date: 20221114
  Transmission Date: 20230113
  Serious: Yes (Life-Threatening, Hospitalization)
  Sender: FDA-Public Use
  Company Number: None

PATIENT
  Age: 43 Year
  Sex: Male

DRUGS (2)
  1. DIAZEPAM [Suspect]
     Active Substance: DIAZEPAM
     Indication: Product used for unknown indication
  2. METHADONE HYDROCHLORIDE [Suspect]
     Active Substance: METHADONE HYDROCHLORIDE
     Indication: Product used for unknown indication
     Dosage: MESUSAGE RAPPORTE JUSQU^A 400 MG PARFOIS PAR VOIE INJECTEE
     Route: 050
     Dates: start: 2009

REACTIONS (4)
  - Pneumonia aspiration [Recovered/Resolved]
  - Coma [Recovered/Resolved]
  - Respiratory arrest [Recovered/Resolved]
  - Drug dependence [Recovering/Resolving]

NARRATIVE: CASE EVENT DATE: 20221013
